FAERS Safety Report 4940611-8 (Version None)
Quarter: 2006Q1

REPORT INFORMATION
  Report Type: 
  Country: None (occurrence: None)
  Receive Date: 20060127
  Receipt Date: 20050708
  Transmission Date: 20060701
  Serious: Yes (Life-Threatening)
  Sender: FDA-Public Use
  Company Number: 2005RL000083

PATIENT
  Age: 49 Year
  Sex: Male

DRUGS (9)
  1. PROPAFENONE HCL [Suspect]
     Indication: ATRIAL FIBRILLATION
     Dosage: 600 MG;QD;PO
     Route: 048
     Dates: start: 20050615, end: 20050620
  2. ATENOLOL [Suspect]
     Indication: ATRIAL FIBRILLATION
     Dosage: SEE IMAGE
     Route: 048
     Dates: start: 20050615, end: 20050628
  3. ATENOLOL [Suspect]
     Indication: ATRIAL FIBRILLATION
     Dosage: SEE IMAGE
     Route: 048
     Dates: start: 20050628
  4. COUMADIN [Suspect]
     Indication: ATRIAL FIBRILLATION
     Dosage: SEE IMAGE
     Route: 048
     Dates: start: 20050616, end: 20050628
  5. COUMADIN [Suspect]
     Indication: ATRIAL FIBRILLATION
     Dosage: SEE IMAGE
     Route: 048
     Dates: start: 20050628
  6. PANTOPRAZOLE SODIUM [Concomitant]
  7. OMEGA-3 TRIGLYCERIDES [Concomitant]
  8. PREDNISONE [Concomitant]
  9. CETIRIZINE HYDROCHLORIDE [Concomitant]

REACTIONS (1)
  - CARDIAC ARREST [None]
